FAERS Safety Report 6355348-0 (Version None)
Quarter: 2009Q3

REPORT INFORMATION
  Report Type: 
  Country: None (occurrence: None)
  Receive Date: 20090914
  Receipt Date: 20090904
  Transmission Date: 20100115
  Serious: Yes (Death)
  Sender: FDA-Public Use
  Company Number: CA-PFIZER INC-2009264641

PATIENT

DRUGS (1)
  1. CELECOXIB [Suspect]
     Route: 048

REACTIONS (1)
  - DEATH [None]
